FAERS Safety Report 15710466 (Version 2)
Quarter: 2019Q1

REPORT INFORMATION
  Report Type: Spontaneous
  Country: IT (occurrence: IT)
  Receive Date: 20181211
  Receipt Date: 20190121
  Transmission Date: 20190417
  Serious: Yes (Other)
  Sender: FDA-Public Use
  Company Number: PHHY2018IT174293

PATIENT
  Age: 20 Year
  Sex: Male

DRUGS (4)
  1. TOCILIZUMAB. [Concomitant]
     Active Substance: TOCILIZUMAB
     Indication: NEUROMYELITIS OPTICA SPECTRUM DISORDER
     Dosage: 8 MG/KG, (EVERY 4 WEEKS)
     Route: 042
     Dates: start: 201609
  2. RITUXIMAB. [Suspect]
     Active Substance: RITUXIMAB
     Indication: NEUROMYELITIS OPTICA SPECTRUM DISORDER
  3. RITUXIMAB. [Suspect]
     Active Substance: RITUXIMAB
     Indication: NERVOUS SYSTEM DISORDER
     Dosage: 1 G, UNK (2 INFUSIONS)
     Route: 042
     Dates: start: 201601
  4. METHYLPREDNISOLONE. [Suspect]
     Active Substance: METHYLPREDNISOLONE
     Indication: NEUROMYELITIS OPTICA SPECTRUM DISORDER
     Dosage: 1 G, UNK
     Route: 042

REACTIONS (4)
  - Product use in unapproved indication [Unknown]
  - Optic neuritis [Unknown]
  - Therapy non-responder [Unknown]
  - Myelitis transverse [Unknown]
